FAERS Safety Report 24555052 (Version 1)
Quarter: 2024Q4

REPORT INFORMATION
  Report Type: Spontaneous
  Country: JP (occurrence: JP)
  Receive Date: 20241028
  Receipt Date: 20241028
  Transmission Date: 20250114
  Serious: Yes (Hospitalization)
  Sender: MACLEODS
  Company Number: JP-MLMSERVICE-20241015-PI227506-00326-1

PATIENT

DRUGS (5)
  1. ACYCLOVIR [Suspect]
     Active Substance: ACYCLOVIR
     Indication: Ophthalmic herpes zoster
     Route: 042
  2. ACYCLOVIR [Suspect]
     Active Substance: ACYCLOVIR
     Indication: Ophthalmic herpes zoster
     Dosage: OINTMENT
     Route: 065
  3. VALACYCLOVIR HYDROCHLORIDE [Suspect]
     Active Substance: VALACYCLOVIR HYDROCHLORIDE
     Indication: Ophthalmic herpes zoster
     Route: 048
  4. VIDARABINE [Suspect]
     Active Substance: VIDARABINE
     Indication: Ophthalmic herpes zoster
     Route: 042
  5. AMENAMEVIR [Suspect]
     Active Substance: AMENAMEVIR
     Indication: Ophthalmic herpes zoster
     Route: 065

REACTIONS (1)
  - Toxic encephalopathy [Recovering/Resolving]
